FAERS Safety Report 4445625-2 (Version None)
Quarter: 2004Q3

REPORT INFORMATION
  Report Type: 
  Country: None (occurrence: None)
  Receive Date: 20040902
  Receipt Date: 20040826
  Transmission Date: 20050211
  Serious: Yes (Hospitalization, Other)
  Sender: FDA-Public Use
  Company Number: HQWYE611226AUG04

PATIENT
  Age: 73 Year
  Sex: Female

DRUGS (7)
  1. PANTOPRAZOLE SODIUM [Suspect]
     Indication: CAMPYLOBACTER GASTROENTERITIS
     Dosage: 40 MG 2 X PER 1 DAY, ORAL
     Route: 048
     Dates: start: 20040727, end: 20040728
  2. AMOXICILLIN [Suspect]
     Indication: CAMPYLOBACTER GASTROENTERITIS
     Dosage: 1000 MG 2 X PER 1 DAY, ORAL
     Route: 048
     Dates: start: 20040727, end: 20040728
  3. CLARITHROMYCIN [Suspect]
     Indication: CAMPYLOBACTER GASTROENTERITIS
     Dosage: 500 MG 2 X PER 1 DAY, ORAL
     Route: 048
     Dates: start: 20040727, end: 20040728
  4. BISOPROLOL FUAMRATE (BISOPROLOL FUMARATE) [Concomitant]
  5. AMLODIPINE [Concomitant]
  6. AMARYL [Concomitant]
  7. INSULIN [Concomitant]

REACTIONS (1)
  - EXANTHEM [None]
